FAERS Safety Report 22021622 (Version 2)
Quarter: 2023Q1

REPORT INFORMATION
  Report Type: Spontaneous
  Country: US (occurrence: None)
  Receive Date: 20230222
  Receipt Date: 20230227
  Transmission Date: 20230417
  Serious: No
  Sender: FDA-Public Use
  Company Number: US-Merck Healthcare KGaA-9385196

PATIENT
  Sex: Female
  Weight: 86 kg

DRUGS (1)
  1. EUTHYROX [Suspect]
     Active Substance: LEVOTHYROXINE SODIUM
     Indication: Thyroid therapy
     Route: 048
     Dates: start: 20200620

REACTIONS (1)
  - Treatment noncompliance [Unknown]
